FAERS Safety Report 5426083-8 (Version None)
Quarter: 2007Q3

REPORT INFORMATION
  Report Type: 
  Country: None (occurrence: None)
  Receive Date: 20070824
  Receipt Date: 20070824
  Transmission Date: 20080115
  Serious: Yes (Other)
  Sender: FDA-Public Use
  Company Number: None

PATIENT
  Age: 33 Year
  Sex: Female
  Weight: 61.2356 kg

DRUGS (2)
  1. PHOSPHATIDYLCHOLIN 10% APOTHECURE INC. [Suspect]
     Indication: THERAPEUTIC PROCEDURE
     Dosage: 100CC SQ
     Route: 058
  2. DEOXYCHOLIC ACID 9.5% APOTHECURE INC. [Suspect]

REACTIONS (18)
  - CHEST DISCOMFORT [None]
  - CHEST PAIN [None]
  - CONVULSION [None]
  - DYSPNOEA [None]
  - GAIT DISTURBANCE [None]
  - HEART RATE INCREASED [None]
  - HYPERHIDROSIS [None]
  - HYPOAESTHESIA [None]
  - INFLAMMATION [None]
  - LOSS OF CONSCIOUSNESS [None]
  - MALAISE [None]
  - MUSCLE SPASMS [None]
  - NAUSEA [None]
  - PAIN [None]
  - PALLOR [None]
  - PARAESTHESIA [None]
  - SKIN STRIAE [None]
  - SWELLING [None]
